FAERS Safety Report 4864436-7 (Version None)
Quarter: 2005Q4

REPORT INFORMATION
  Report Type: 
  Country: None (occurrence: None)
  Receive Date: 20051222
  Receipt Date: 20051005
  Transmission Date: 20060501
  Serious: Yes (Death, Hospitalization, Disabling)
  Sender: FDA-Public Use
  Company Number: US-MERCK-0510USA05518

PATIENT
  Age: 80 Year
  Sex: Male
  Weight: 86 kg

DRUGS (1)
  1. VIOXX [Suspect]
     Indication: ARTHRALGIA
     Route: 048
     Dates: start: 19991220, end: 20001015

REACTIONS (14)
  - ARTERIAL OCCLUSIVE DISEASE [None]
  - CARDIOVASCULAR DISORDER [None]
  - CYST [None]
  - DEATH [None]
  - DIABETES MELLITUS [None]
  - HAEMORRHAGE [None]
  - HEART RATE IRREGULAR [None]
  - INFECTED CYST [None]
  - LEG AMPUTATION [None]
  - LOCALISED INFECTION [None]
  - MYOCARDIAL INFARCTION [None]
  - PERIPHERAL VASCULAR DISORDER [None]
  - PROSTATIC ABSCESS [None]
  - SKIN INFECTION [None]
